FAERS Safety Report 6729621-8 (Version None)
Quarter: 2010Q2

REPORT INFORMATION
  Report Type: 
  Country: None (occurrence: None)
  Receive Date: 20100518
  Receipt Date: 20100511
  Transmission Date: 20101027
  Serious: Yes (Hospitalization)
  Sender: FDA-Public Use
  Company Number: PHHO2007DE05822

PATIENT
  Sex: Female

DRUGS (2)
  1. CERTICAN [Suspect]
     Indication: LIVER TRANSPLANT
     Dosage: 5.50 MG / DAY
     Route: 048
     Dates: start: 20061204
  2. CERTICAN [Suspect]
     Dosage: 3 MG DAILY
     Route: 048

REACTIONS (8)
  - ANAEMIA [None]
  - C-REACTIVE PROTEIN INCREASED [None]
  - CANDIDA PNEUMONIA [None]
  - ENDOCARDITIS [None]
  - LUNG DISORDER [None]
  - PNEUMONIA [None]
  - PNEUMONIA BACTERIAL [None]
  - PYREXIA [None]
